FAERS Safety Report 7425416-0 (Version None)
Quarter: 2011Q2

REPORT INFORMATION
  Report Type: 
  Country: None (occurrence: None)
  Receive Date: 20110412
  Receipt Date: 20110328
  Transmission Date: 20111010
  Serious: Yes (Other)
  Sender: FDA-Public Use
  Company Number: 030428

PATIENT
  Sex: Male
  Weight: 21 kg

DRUGS (4)
  1. XYZAL [Suspect]
     Indication: ALLERGIC BRONCHITIS
     Dosage: (0.5 MG/ML ORAL)
     Route: 048
     Dates: start: 20110224, end: 20110317
  2. SINGULAIR [Concomitant]
  3. PULMICORT [Concomitant]
  4. VENTOLIN [Concomitant]

REACTIONS (4)
  - AGGRESSION [None]
  - HEADACHE [None]
  - DEPRESSED MOOD [None]
  - HEAD BANGING [None]
